FAERS Safety Report 4337093-6 (Version None)
Quarter: 2004Q2

REPORT INFORMATION
  Report Type: 
  Country: None (occurrence: None)
  Receive Date: 20040408
  Receipt Date: 20040324
  Transmission Date: 20050107
  Serious: No
  Sender: FDA-Public Use
  Company Number: 2004-UK-00296UK (0)

PATIENT
  Sex: Female

DRUGS (7)
  1. ATROVENT [Suspect]
     Indication: ASTHMA
     Dosage: 2 PUF
     Route: 055
     Dates: start: 20040310, end: 20040310
  2. BENDROFLUAZIDE (BENDROFLUMETHIAZIDE) [Concomitant]
  3. LOSARTAN (LOSARTAN) [Concomitant]
  4. NIFEDIPINE [Concomitant]
  5. FYBOGEL (ISPAGHULA) [Concomitant]
  6. BECLOMETHASONE DIPROPIONATE [Concomitant]
  7. SALBUTAMOL (SALBUTAMOL) [Concomitant]

REACTIONS (2)
  - CHEST PAIN [None]
  - OROPHARYNGEAL SWELLING [None]
